FAERS Safety Report 7033557-5 (Version None)
Quarter: 2010Q4

REPORT INFORMATION
  Report Type: 
  Country: None (occurrence: None)
  Receive Date: 20101007
  Receipt Date: 20100924
  Transmission Date: 20110411
  Serious: Yes (Hospitalization)
  Sender: FDA-Public Use
  Company Number: PHHY2010US63832

PATIENT

DRUGS (1)
  1. ZOMETA [Suspect]

REACTIONS (1)
  - LIVER DISORDER [None]
